FAERS Safety Report 8781114 (Version 1)
Quarter: 2012Q4

REPORT INFORMATION
  Report Type: 
  Country: US (occurrence: US)
  Receive Date: 20120913
  Receipt Date: 20120913
  Transmission Date: 20130627
  Serious: Yes (Other)
  Sender: FDA-Public Use
  Company Number: US-ROCHE-1113178

PATIENT
  Age: 55 Year
  Sex: Female

DRUGS (2)
  1. AVASTIN [Suspect]
     Indication: BREAST CANCER FEMALE
     Route: 065
  2. TARCEVA [Suspect]
     Indication: BREAST CANCER FEMALE
     Route: 065

REACTIONS (9)
  - Dyspnoea exertional [Unknown]
  - Wheezing [Unknown]
  - Oxygen saturation decreased [Unknown]
  - Traumatic lung injury [Unknown]
  - Therapeutic response decreased [Unknown]
  - Respiratory disorder [Unknown]
  - Rash [Unknown]
  - Cough [Unknown]
  - Metastases to lung [Unknown]
